FAERS Safety Report 4897753-5 (Version None)
Quarter: 2006Q1

REPORT INFORMATION
  Report Type: 
  Country: None (occurrence: None)
  Receive Date: 20060130
  Receipt Date: 20060120
  Transmission Date: 20060701
  Serious: Yes (Other)
  Sender: FDA-Public Use
  Company Number: HQWYE492724JAN06

PATIENT
  Sex: Male

DRUGS (1)
  1. PRIMATENE MIST [Suspect]
     Indication: ASTHMA
     Dosage: 1 INHALATION UP TO TIMES A DAY, INHALATION
     Route: 055
     Dates: start: 20020101, end: 20060116

REACTIONS (5)
  - ANOREXIA [None]
  - DRUG DEPENDENCE [None]
  - INSOMNIA [None]
  - NERVOUSNESS [None]
  - OVERDOSE [None]
